FAERS Safety Report 5852302-X (Version None)
Quarter: 2008Q3

REPORT INFORMATION
  Report Type: 
  Country: None (occurrence: None)
  Receive Date: 20080819
  Receipt Date: 20080808
  Transmission Date: 20090109
  Serious: Yes (Other)
  Sender: FDA-Public Use
  Company Number: SPV1-2008-01704

PATIENT
  Age: 9 Year
  Sex: Male

DRUGS (2)
  1. ELAPRASE [Suspect]
     Indication: MUCOPOLYSACCHARIDOSIS II
     Dosage: 13 MG, IV DRIP
     Route: 041
     Dates: start: 20080311, end: 20080401
  2. ELAPRASE [Suspect]
     Indication: MUCOPOLYSACCHARIDOSIS II
     Dosage: 13 MG, IV DRIP
     Route: 041
     Dates: start: 20080805

REACTIONS (2)
  - CONVULSION [None]
  - NONSPECIFIC REACTION [None]
